FAERS Safety Report 5372498-6 (Version None)
Quarter: 2007Q2

REPORT INFORMATION
  Report Type: 
  Country: None (occurrence: None)
  Receive Date: 20070625
  Receipt Date: 20070607
  Transmission Date: 20071010
  Serious: Yes (Other)
  Sender: FDA-Public Use
  Company Number: 8020291

PATIENT
  Age: 21 Year
  Sex: Female

DRUGS (4)
  1. KEPPRA [Suspect]
     Indication: EPILEPSY
     Dosage: 500 MG/D PO
     Route: 048
  2. FOLIC ACID [Concomitant]
  3. PRENATAL VITAMINS [Concomitant]
  4. MACROBID [Concomitant]

REACTIONS (4)
  - ANTEPARTUM HAEMORRHAGE [None]
  - DRUG EXPOSURE DURING PREGNANCY [None]
  - GRAND MAL CONVULSION [None]
  - PREGNANCY [None]
